FAERS Safety Report 7484710-8 (Version None)
Quarter: 2011Q1

REPORT INFORMATION
  Report Type: 
  Country: None (occurrence: None)
  Receive Date: 20110309
  Receipt Date: 20101118
  Transmission Date: 20110831
  Serious: Yes (Other)
  Sender: FDA-Public Use
  Company Number: 2010SP060907

PATIENT
  Age: 33 Year
  Sex: Female

DRUGS (2)
  1. SAPHRIS [Suspect]
     Indication: PRODUCT USED FOR UNKNOWN INDICATION
     Dosage: SL
     Route: 060
     Dates: start: 20101018
  2. ANTIDEPRESSANT [Concomitant]

REACTIONS (1)
  - SWOLLEN TONGUE [None]
